FAERS Safety Report 24692251 (Version 1)
Quarter: 2024Q4

REPORT INFORMATION
  Report Type: Spontaneous
  Country: US (occurrence: None)
  Receive Date: 20241203
  Receipt Date: 20241203
  Transmission Date: 20250115
  Serious: Yes (unspecified)
  Sender: Public
  Company Number: None

PATIENT
  Age: 55 Year
  Sex: Male

DRUGS (1)
  1. VENCLEXTA [Suspect]
     Active Substance: VENETOCLAX
     Indication: Chronic lymphocytic leukaemia
     Dosage: 400MG QD ORAL
     Route: 048

REACTIONS (5)
  - Subdural haemorrhage [None]
  - Platelet disorder [None]
  - Headache [None]
  - Rash [None]
  - Therapy interrupted [None]
